FAERS Safety Report 8083572-8 (Version None)
Quarter: 2012Q1

REPORT INFORMATION
  Report Type: 
  Country: None (occurrence: None)
  Receive Date: 20120127
  Receipt Date: 20110118
  Transmission Date: 20120608
  Serious: No
  Sender: FDA-Public Use
  Company Number: US-ABBOTT-11P-163-0698843-00

PATIENT
  Age: 26 Year
  Sex: Female

DRUGS (2)
  1. HUMIRA [Suspect]
     Indication: CROHN'S DISEASE
     Dosage: REC'D LOADING DOSE
     Dates: start: 20101118
  2. ACETAMINOPHEN [Concomitant]
     Indication: HEADACHE

REACTIONS (6)
  - NASOPHARYNGITIS [None]
  - PYREXIA [None]
  - NAUSEA [None]
  - HYPERHIDROSIS [None]
  - INFLUENZA [None]
  - BONE PAIN [None]
